FAERS Safety Report 9494844 (Version 1)
Quarter: 2013Q3

REPORT INFORMATION
  Report Type: Spontaneous
  Country: US (occurrence: US)
  Receive Date: 20130903
  Receipt Date: 20130903
  Transmission Date: 20140515
  Serious: No
  Sender: FDA-Public Use
  Company Number: US-PFIZER INC-2013250843

PATIENT
  Age: 86 Year
  Sex: Female
  Weight: 68.03 kg

DRUGS (3)
  1. PREMARIN [Suspect]
     Dosage: 0.3 MG, 1X/DAY
  2. LISINOPRIL [Concomitant]
     Indication: HYPERTENSION
     Dosage: UNK, 1X/DAY
  3. PREMARIN [Suspect]
     Indication: HORMONE REPLACEMENT THERAPY
     Dosage: UNK

REACTIONS (3)
  - Drug ineffective [Unknown]
  - Hot flush [Not Recovered/Not Resolved]
  - Incorrect dose administered [Unknown]
